FAERS Safety Report 14627932 (Version 15)
Quarter: 2018Q4

REPORT INFORMATION
  Report Type: Report from Study
  Country: US (occurrence: US)
  Receive Date: 20180312
  Receipt Date: 20181130
  Transmission Date: 20190204
  Serious: Yes (Hospitalization, Other)
  Sender: FDA-Public Use
  Company Number: US-ACTELION-A-NJ2018-168572

PATIENT
  Age: 40 Year
  Sex: Female
  Weight: 70.75 kg

DRUGS (8)
  1. UPTRAVI [Concomitant]
     Active Substance: SELEXIPAG
  2. VELETRI [Suspect]
     Active Substance: EPOPROSTENOL
     Indication: PULMONARY ARTERIAL HYPERTENSION
     Dosage: 4 NG/KG, PER MIN
     Route: 042
  3. VELETRI [Suspect]
     Active Substance: EPOPROSTENOL
     Dosage: 9 NG/KG, PER MIN
     Route: 042
  4. OPSUMIT [Suspect]
     Active Substance: MACITENTAN
     Indication: PULMONARY ARTERIAL HYPERTENSION
     Dosage: 10 MG, UNK
     Route: 048
     Dates: start: 20180124, end: 20180815
  5. SILDENAFIL CITRATE. [Concomitant]
     Active Substance: SILDENAFIL CITRATE
  6. VELETRI [Suspect]
     Active Substance: EPOPROSTENOL
     Dosage: 3 NG/KG, PER MIN
     Route: 042
     Dates: start: 20180226
  7. LETAIRIS [Concomitant]
     Active Substance: AMBRISENTAN
  8. VELETRI [Suspect]
     Active Substance: EPOPROSTENOL
     Dosage: 6 NG/KG, PER MIN
     Route: 042

REACTIONS (30)
  - Aspartate aminotransferase increased [Unknown]
  - Musculoskeletal pain [Not Recovered/Not Resolved]
  - Pain in jaw [Unknown]
  - Microcytic anaemia [Not Recovered/Not Resolved]
  - Seasonal allergy [Unknown]
  - Catheter site oedema [Unknown]
  - Diarrhoea [Not Recovered/Not Resolved]
  - Flushing [Unknown]
  - Alanine aminotransferase increased [Unknown]
  - Catheter site erythema [Unknown]
  - Fatigue [Unknown]
  - Chest pain [Unknown]
  - Liver disorder [Unknown]
  - Hepatic enzyme abnormal [Unknown]
  - Pain [Not Recovered/Not Resolved]
  - Suture related complication [Unknown]
  - Chest discomfort [Unknown]
  - Catheter site pruritus [Unknown]
  - Cardiac flutter [Unknown]
  - Dizziness [Unknown]
  - Liver function test increased [Unknown]
  - Anxiety [Unknown]
  - Pulmonary hypertension [Unknown]
  - Dyspnoea [Unknown]
  - Nausea [Not Recovered/Not Resolved]
  - Catheter site scab [Unknown]
  - Gastroenteritis viral [Unknown]
  - Catheter site rash [Unknown]
  - Headache [Unknown]
  - Rash pruritic [Unknown]

NARRATIVE: CASE EVENT DATE: 20180226
